FAERS Safety Report 5093245-1 (Version None)
Quarter: 2006Q3

REPORT INFORMATION
  Report Type: 
  Country: None (occurrence: None)
  Receive Date: 20060830
  Receipt Date: 20060818
  Transmission Date: 20061208
  Serious: Yes (Life-Threatening, Other)
  Sender: FDA-Public Use
  Company Number: DE-BOEHRINGER INGELHEIM PHARMACEUTICALS, INC.-2006-DE-04337GD

PATIENT
  Age: 41 Year
  Sex: Male

DRUGS (8)
  1. MORPHINE [Suspect]
     Indication: PAIN
     Dosage: INITIAL DOSE OF 14 MG, LATER REDUCED TO 2 MG; WITHIN THE FOLLOWING MONTHS FINALLY INCREASED TO 4 MG
     Route: 037
     Dates: start: 20040101
  2. MORPHINE [Suspect]
     Indication: NEURALGIA
  3. CLONIDINE [Suspect]
     Indication: PAIN
     Route: 037
     Dates: start: 20040101
  4. CLONIDINE [Suspect]
     Indication: NEURALGIA
  5. AMITRIPTYLINE HCL [Suspect]
     Indication: PAIN
  6. AMITRIPTYLINE HCL [Suspect]
     Indication: NEURALGIA
  7. GABAPENTIN [Suspect]
     Indication: PAIN
  8. GABAPENTIN [Suspect]
     Indication: NEURALGIA

REACTIONS (10)
  - CATHETER RELATED COMPLICATION [None]
  - DEPRESSED MOOD [None]
  - DRUG INEFFECTIVE [None]
  - DRUG WITHDRAWAL SYNDROME [None]
  - FATIGUE [None]
  - NARCOTIC INTOXICATION [None]
  - RESPIRATORY ACIDOSIS [None]
  - RESPIRATORY DEPRESSION [None]
  - RESUSCITATION [None]
  - SLEEP DISORDER [None]
